FAERS Safety Report 10836340 (Version 1)
Quarter: 2015Q1

REPORT INFORMATION
  Report Type: Spontaneous
  Country: US (occurrence: None)
  Receive Date: 20150218
  Receipt Date: 20150218
  Transmission Date: 20150721
  Serious: Yes (Hospitalization, Other)
  Sender: FDA-Public Use
  Company Number: US-ZYDUS-006574

PATIENT
  Age: 46 Year
  Sex: Male

DRUGS (3)
  1. LABETALOL [Concomitant]
     Active Substance: LABETALOL\LABETALOL HYDROCHLORIDE
  2. CLONIDINE (CLONIDINE) [Suspect]
     Active Substance: CLONIDINE
     Indication: HYPERTENSION
  3. YOHIMBINE [Suspect]
     Active Substance: YOHIMBINE
     Indication: ERECTILE DYSFUNCTION

REACTIONS (2)
  - Hypertensive crisis [None]
  - Drug interaction [None]
